FAERS Safety Report 4810247-8 (Version None)
Quarter: 2005Q4

REPORT INFORMATION
  Report Type: 
  Country: None (occurrence: None)
  Receive Date: 20051026
  Receipt Date: 20051013
  Transmission Date: 20060501
  Serious: Yes (Hospitalization)
  Sender: FDA-Public Use
  Company Number: FR-GLAXOSMITHKLINE-B0397506A

PATIENT
  Age: 87 Year
  Sex: Female
  Weight: 60 kg

DRUGS (6)
  1. DEROXAT [Suspect]
     Indication: BIPOLAR I DISORDER
     Dosage: 20MG PER DAY
     Route: 048
     Dates: start: 20050801, end: 20050905
  2. EFFEXOR [Concomitant]
     Route: 065
     Dates: start: 20050905
  3. VASTAREL [Concomitant]
     Dosage: 1UNIT PER DAY
     Route: 048
     Dates: end: 20050831
  4. LYSOPAINE [Concomitant]
     Route: 048
     Dates: end: 20050831
  5. BROMAZEPAM [Concomitant]
     Indication: ANXIETY
     Route: 048
     Dates: end: 20050831
  6. LOVENOX [Concomitant]
     Dosage: 1INJ PER DAY
     Route: 030
     Dates: end: 20050831

REACTIONS (3)
  - HYPONATRAEMIA [None]
  - INTENTIONAL DRUG MISUSE [None]
  - OVERDOSE [None]
